FAERS Safety Report 4585712-1 (Version None)
Quarter: 2005Q1

REPORT INFORMATION
  Report Type: 
  Country: None (occurrence: None)
  Receive Date: 20050217
  Receipt Date: 20041011
  Transmission Date: 20050727
  Serious: Yes (Other)
  Sender: FDA-Public Use
  Company Number: PHNU2004DE03481

PATIENT
  Age: 67 Year
  Sex: Male
  Weight: 48 kg

DRUGS (5)
  1. COAPROVEL [Concomitant]
  2. TEGRETOL [Suspect]
     Indication: POST-TRAUMATIC EPILEPSY
     Dosage: 200 MG, QD
     Route: 048
     Dates: start: 19760101
  3. ATACAND [Suspect]
     Dosage: 16 MG/DAY
     Dates: start: 20030101
  4. HYDROCHLOROTHIAZIDE [Suspect]
     Dosage: 12.5 MG/DAY
     Dates: start: 20030101
  5. MYLEPSIN [Concomitant]
     Dosage: 1 DF, BID
     Route: 048
     Dates: start: 19560101

REACTIONS (12)
  - CHRONIC OBSTRUCTIVE PULMONARY DISEASE [None]
  - DEPRESSION [None]
  - ELECTROENCEPHALOGRAM ABNORMAL [None]
  - EMPHYSEMA [None]
  - GLAUCOMA [None]
  - HYPERTENSION [None]
  - HYPONATRAEMIA [None]
  - NIGHTMARE [None]
  - OSTEOPOROSIS [None]
  - POST PROCEDURAL COMPLICATION [None]
  - PROSTATIC OPERATION [None]
  - STRESS [None]
